FAERS Safety Report 5613030-9 (Version None)
Quarter: 2008Q1

REPORT INFORMATION
  Report Type: 
  Country: None (occurrence: None)
  Receive Date: 20080204
  Receipt Date: 20080123
  Transmission Date: 20080703
  Serious: Yes (Other)
  Sender: FDA-Public Use
  Company Number: US-PFIZER INC-2008007230

PATIENT
  Sex: Female

DRUGS (2)
  1. NARDIL [Suspect]
     Indication: OBSESSIVE-COMPULSIVE DISORDER
  2. NARDIL [Suspect]
     Indication: SCHIZOPHRENIA

REACTIONS (2)
  - HYPONATRAEMIA [None]
  - OEDEMA [None]
